FAERS Safety Report 20499392 (Version 1)
Quarter: 2022Q1

REPORT INFORMATION
  Report Type: Spontaneous
  Country: US (occurrence: US)
  Receive Date: 20220222
  Receipt Date: 20220222
  Transmission Date: 20220423
  Serious: No
  Sender: FDA-Public Use
  Company Number: US-GRANULES-US-2022GRASPO00022

PATIENT

DRUGS (1)
  1. CLOTRIMAZOLE [Suspect]
     Active Substance: CLOTRIMAZOLE
     Indication: Antifungal treatment
     Route: 065

REACTIONS (2)
  - Off label use [Unknown]
  - Drug effective for unapproved indication [Unknown]
